FAERS Safety Report 16254648 (Version 1)
Quarter: 2019Q2

REPORT INFORMATION
  Report Type: Spontaneous
  Country: RU (occurrence: RU)
  Receive Date: 20190430
  Receipt Date: 20190430
  Transmission Date: 20190711
  Serious: Yes (Other)
  Sender: FDA-Public Use
  Company Number: RU-SA-2019SA113725

PATIENT
  Age: 51 Year

DRUGS (8)
  1. FLUDARABINE PHOSPHATE. [Suspect]
     Active Substance: FLUDARABINE PHOSPHATE
     Indication: BONE MARROW CONDITIONING REGIMEN
     Dosage: 3.2 MG/KG, QD
     Route: 065
  2. MYLERAN [Suspect]
     Active Substance: BUSULFAN
     Indication: BONE MARROW CONDITIONING REGIMEN
     Dosage: 3.2 MG/KG, QD
     Route: 065
  3. MYCOPHENOLATE MOFETIL. [Concomitant]
     Active Substance: MYCOPHENOLATE MOFETIL
     Indication: PROPHYLAXIS AGAINST GRAFT VERSUS HOST DISEASE
     Dosage: UNK UNK, UNK
     Route: 065
  4. MOZOBIL [Suspect]
     Active Substance: PLERIXAFOR
     Indication: BONE MARROW CONDITIONING REGIMEN
     Dosage: 3.2 MG/KG, QD
     Route: 065
  5. MYLERAN [Suspect]
     Active Substance: BUSULFAN
     Dosage: 50 MG/M2
     Route: 065
  6. FLUDARABINE PHOSPHATE. [Suspect]
     Active Substance: FLUDARABINE PHOSPHATE
     Dosage: 50 MG/M2
     Route: 065
  7. CYCLOSPORINE. [Concomitant]
     Active Substance: CYCLOSPORINE
     Indication: PROPHYLAXIS AGAINST GRAFT VERSUS HOST DISEASE
     Dosage: UNK UNK, UNK
     Route: 065
  8. MOZOBIL [Suspect]
     Active Substance: PLERIXAFOR
     Dosage: 50 MG/M2, QD
     Route: 065

REACTIONS (2)
  - Mucosal inflammation [Unknown]
  - Colitis [Unknown]
